FAERS Safety Report 17976469 (Version 1)
Quarter: 2020Q3

REPORT INFORMATION
  Report Type: Other
  Country: ES (occurrence: ES)
  Receive Date: 20200703
  Receipt Date: 20200703
  Transmission Date: 20201103
  Serious: Yes (Other)
  Sender: FDA-Public Use
  Company Number: ES-CELLTRION INC.-2020ES023833

PATIENT

DRUGS (4)
  1. DANAZOL. [Suspect]
     Active Substance: DANAZOL
     Indication: TRANSAMINASES INCREASED
     Dosage: UNK
     Dates: start: 20190829, end: 2019
  2. IMMUNOGLOBULIN ANTI?D (RHO) [Suspect]
     Active Substance: HUMAN RHO(D) IMMUNE GLOBULIN
     Indication: THROMBOCYTOPENIA
     Dosage: UNK
     Dates: start: 201908, end: 2019
  3. RITUXIMAB (UNKNOWN) [Suspect]
     Active Substance: RITUXIMAB
     Indication: THROMBOCYTOPENIA
     Dosage: UNK
     Dates: start: 201908, end: 2019
  4. ISONIAZID. [Suspect]
     Active Substance: ISONIAZID
     Dosage: UNK
     Dates: start: 20190828

REACTIONS (2)
  - Hepatotoxicity [Unknown]
  - Off label use [Unknown]

NARRATIVE: CASE EVENT DATE: 2019
